FAERS Safety Report 11330596 (Version 1)
Quarter: 2015Q3

REPORT INFORMATION
  Report Type: Spontaneous
  Country: US (occurrence: None)
  Receive Date: 20150730
  Receipt Date: 20150730
  Transmission Date: 20151125
  Serious: Yes (Life-Threatening)
  Sender: FDA-Public Use
  Company Number: None

PATIENT
  Age: 58 Year
  Sex: Female

DRUGS (5)
  1. INFLAMMATORIES [Concomitant]
  2. ANTI-DEPRESSANTS [Concomitant]
     Active Substance: UNSPECIFIED INGREDIENT
  3. FISH OIL [Concomitant]
     Active Substance: FISH OIL
  4. TRADJENTA [Suspect]
     Active Substance: LINAGLIPTIN
  5. ANTI-ANXIETY MEDICATION [Concomitant]
     Active Substance: UNSPECIFIED INGREDIENT

REACTIONS (4)
  - Pancreatitis acute [None]
  - Nausea [None]
  - Vomiting projectile [None]
  - Diarrhoea [None]

NARRATIVE: CASE EVENT DATE: 20150728
